FAERS Safety Report 16127544 (Version 4)
Quarter: 2019Q3

REPORT INFORMATION
  Report Type: Spontaneous
  Country: JP (occurrence: JP)
  Receive Date: 20190328
  Receipt Date: 20190712
  Transmission Date: 20191004
  Serious: Yes (Hospitalization, Other)
  Sender: FDA-Public Use
  Company Number: JP-TEVA-2019-JP-1029275

PATIENT
  Age: 83 Year
  Sex: Female

DRUGS (10)
  1. ARICEPT [Concomitant]
     Active Substance: DONEPEZIL HYDROCHLORIDE
     Route: 065
     Dates: start: 20181130, end: 20190510
  2. LEPRINTON [Concomitant]
     Active Substance: CARBIDOPA\LEVODOPA
     Dates: start: 20151022, end: 20190324
  3. AZILECT [Suspect]
     Active Substance: RASAGILINE MESYLATE
     Indication: PARKINSON^S DISEASE
     Dosage: .5 MILLIGRAM DAILY;
     Route: 048
     Dates: start: 20190214, end: 20190226
  4. AZILECT [Suspect]
     Active Substance: RASAGILINE MESYLATE
     Dosage: .5 MILLIGRAM DAILY;
     Route: 048
     Dates: start: 20190311, end: 20190318
  5. YOKUKANSAN [Concomitant]
     Active Substance: HERBALS
     Dates: start: 20190110, end: 20190404
  6. REBAMIPIDE [Concomitant]
     Active Substance: REBAMIPIDE
     Dates: start: 20170731
  7. AZILECT [Suspect]
     Active Substance: RASAGILINE MESYLATE
     Dosage: 1 MILLIGRAM DAILY;
     Route: 048
     Dates: start: 20190227, end: 20190310
  8. WYPAX [Concomitant]
     Active Substance: LORAZEPAM
     Dates: start: 20171101
  9. LOXONIN [Concomitant]
     Active Substance: LOXOPROFEN SODIUM
  10. DOPACOL [Concomitant]
     Active Substance: CARBIDOPA\LEVODOPA
     Route: 065
     Dates: start: 20190325

REACTIONS (8)
  - Dementia [Unknown]
  - Insomnia [Unknown]
  - Restlessness [Recovered/Resolved]
  - Delusion [Unknown]
  - Hallucination, visual [Unknown]
  - Condition aggravated [Unknown]
  - Agitation [Unknown]
  - Anxiety [Recovering/Resolving]

NARRATIVE: CASE EVENT DATE: 201903
